FAERS Safety Report 4554820-3 (Version None)
Quarter: 2004Q4

REPORT INFORMATION
  Report Type: 
  Country: None (occurrence: None)
  Receive Date: 20041227
  Receipt Date: 20040722
  Transmission Date: 20050328
  Serious: Yes (Other)
  Sender: FDA-Public Use
  Company Number: 2004-0007292

PATIENT
  Sex: Female

DRUGS (1)
  1. VIREAD [Suspect]
     Indication: HIV INFECTION
     Dosage: 300 MG, ORAL
     Route: 048

REACTIONS (1)
  - NEPHROPATHY TOXIC [None]
